FAERS Safety Report 4749078-6 (Version None)
Quarter: 2005Q3

REPORT INFORMATION
  Report Type: 
  Country: None (occurrence: None)
  Receive Date: 20050819
  Receipt Date: 20041104
  Transmission Date: 20060218
  Serious: Yes (Disabling)
  Sender: FDA-Public Use
  Company Number: US-ROCHE-385557

PATIENT
  Sex: Male
  Weight: 65.8 kg

DRUGS (1)
  1. ACCUTANE [Suspect]
     Indication: ACNE
     Route: 048
     Dates: start: 19890615, end: 19920115

REACTIONS (27)
  - ANXIETY [None]
  - ARTHRALGIA [None]
  - ARTHRITIS [None]
  - COLITIS [None]
  - COLITIS ULCERATIVE [None]
  - COUGH [None]
  - CROHN'S DISEASE [None]
  - CUSHINGOID [None]
  - DECREASED APPETITE [None]
  - GASTROINTESTINAL DISORDER [None]
  - GASTROOESOPHAGEAL REFLUX DISEASE [None]
  - HEADACHE [None]
  - HYPERHIDROSIS [None]
  - ILEITIS [None]
  - INFLAMMATORY BOWEL DISEASE [None]
  - INJURY [None]
  - INTESTINAL HAEMORRHAGE [None]
  - IRRITABLE BOWEL SYNDROME [None]
  - MENINGITIS VIRAL [None]
  - MULTI-ORGAN DISORDER [None]
  - PAIN [None]
  - PALLOR [None]
  - PETECHIAE [None]
  - RECTAL HAEMORRHAGE [None]
  - SOMNOLENCE [None]
  - THERAPY NON-RESPONDER [None]
  - VISUAL DISTURBANCE [None]
